FAERS Safety Report 19396116 (Version 1)
Quarter: 2021Q2

REPORT INFORMATION
  Report Type: Report from Study
  Country: BR (occurrence: BR)
  Receive Date: 20210610
  Receipt Date: 20210610
  Transmission Date: 20210717
  Serious: Yes (Other)
  Sender: FDA-Public Use
  Company Number: BR-JNJFOC-20210613633

PATIENT
  Age: 67 Year
  Sex: Female

DRUGS (1)
  1. SIMPONI [Suspect]
     Active Substance: GOLIMUMAB
     Indication: RHEUMATOID ARTHRITIS
     Route: 058
     Dates: start: 20170510

REACTIONS (4)
  - Emphysema [Recovering/Resolving]
  - Osteopenia [Recovering/Resolving]
  - Nausea [Unknown]
  - Oesophageal neoplasm [Recovering/Resolving]

NARRATIVE: CASE EVENT DATE: 202012
